FAERS Safety Report 10717273 (Version 2)
Quarter: 2016Q4

REPORT INFORMATION
  Report Type: Spontaneous
  Country: US (occurrence: US)
  Receive Date: 20150116
  Receipt Date: 20161122
  Transmission Date: 20170206
  Serious: No
  Sender: FDA-Public Use
  Company Number: US-PFIZER INC-2015015937

PATIENT
  Age: 56 Year
  Sex: Female

DRUGS (1)
  1. RELPAX [Suspect]
     Active Substance: ELETRIPTAN HYDROBROMIDE
     Indication: HEADACHE
     Dosage: UNK, AS NEEDED  (1 ONSET OF H/A PRN 1, 2 HR LATER PRN AS DIRECTED)

REACTIONS (1)
  - Migraine [Unknown]
